FAERS Safety Report 16314119 (Version 2)
Quarter: 2020Q2

REPORT INFORMATION
  Report Type: Spontaneous
  Country: US (occurrence: US)
  Receive Date: 20190515
  Receipt Date: 20200402
  Transmission Date: 20200713
  Serious: Yes (Other)
  Sender: FDA-Public Use
  Company Number: US-GLAXOSMITHKLINE-US2019GSK084859

PATIENT
  Age: 68 Year
  Sex: Male

DRUGS (2)
  1. PREVACID [Suspect]
     Active Substance: LANSOPRAZOLE
     Indication: GASTROOESOPHAGEAL REFLUX DISEASE
     Dosage: 15 MG, QD
     Route: 065
     Dates: start: 200904, end: 201001
  2. OMEPRAZOLE. [Suspect]
     Active Substance: OMEPRAZOLE
     Indication: GASTROOESOPHAGEAL REFLUX DISEASE
     Dosage: 20 MG, QD
     Route: 048
     Dates: start: 20121003, end: 20170602

REACTIONS (13)
  - Chronic kidney disease [Unknown]
  - Haematuria [Unknown]
  - Renal failure [Unknown]
  - Nephropathy toxic [Unknown]
  - Hypertensive nephropathy [Unknown]
  - Nephrogenic anaemia [Unknown]
  - Microalbuminuria [Unknown]
  - Proteinuria [Unknown]
  - Chronic obstructive pulmonary disease [Unknown]
  - Diabetic nephropathy [Unknown]
  - Acute kidney injury [Unknown]
  - Hyperlipidaemia [Unknown]
  - Nephropathy [Unknown]

NARRATIVE: CASE EVENT DATE: 20170220
